FAERS Safety Report 15902151 (Version 5)
Quarter: 2019Q1

REPORT INFORMATION
  Report Type: Spontaneous
  Country: US (occurrence: US)
  Receive Date: 20190201
  Receipt Date: 20190311
  Transmission Date: 20190417
  Serious: Yes (Hospitalization)
  Sender: FDA-Public Use
  Company Number: US-ACTELION-A-NJ2019-185573

PATIENT
  Age: 79 Year
  Sex: Female
  Weight: 66.67 kg

DRUGS (2)
  1. OPSUMIT [Suspect]
     Active Substance: MACITENTAN
     Indication: PULMONARY ARTERIAL HYPERTENSION
     Dosage: 10 MG, QD
     Route: 048
     Dates: start: 20180821
  2. OXYGEN. [Concomitant]
     Active Substance: OXYGEN

REACTIONS (16)
  - Syncope [Unknown]
  - Fatigue [Unknown]
  - Dyspnoea [Recovered/Resolved]
  - Exercise tolerance decreased [Unknown]
  - Dyspnoea exertional [Unknown]
  - Heart rate decreased [Recovered/Resolved]
  - Atrioventricular block complete [Recovered/Resolved]
  - Acute kidney injury [Recovered/Resolved]
  - Pulmonary congestion [Recovered/Resolved]
  - Blood creatinine increased [Recovered/Resolved]
  - Cough [Unknown]
  - Hypoxia [Recovered/Resolved]
  - Cardiac pacemaker insertion [Unknown]
  - Localised infection [Unknown]
  - Product dose omission [Unknown]
  - Condition aggravated [Recovered/Resolved]

NARRATIVE: CASE EVENT DATE: 20190113
